FAERS Safety Report 20447527 (Version 3)
Quarter: 2023Q1

REPORT INFORMATION
  Report Type: Report from Study
  Country: US (occurrence: US)
  Receive Date: 20220209
  Receipt Date: 20230207
  Transmission Date: 20230417
  Serious: No
  Sender: FDA-Public Use
  Company Number: US-HRARD-2021000173

PATIENT
  Age: 52 Year
  Sex: Male

DRUGS (11)
  1. LYSODREN [Suspect]
     Active Substance: MITOTANE
     Indication: Adrenocortical carcinoma
     Dosage: 1000 MG TID
     Route: 048
     Dates: start: 20210209
  2. LYSODREN [Suspect]
     Active Substance: MITOTANE
     Indication: Adrenocortical carcinoma
     Dosage: 500 MG TID AS OF 12 MAR 2021 (UNSPECIFIED IF BEFORE OR AFTER DOSE INCREASING)
     Route: 048
     Dates: start: 2021
  3. LYSODREN [Suspect]
     Active Substance: MITOTANE
     Indication: Adrenocortical carcinoma
     Dosage: 03 TABLETS THREE TIMES DAILY AS OF 07 OCT 2021
     Route: 048
     Dates: start: 2021
  4. LYSODREN [Suspect]
     Active Substance: MITOTANE
     Indication: Adrenocortical carcinoma
     Dosage: 03 TABLETS THREE TIMES DAILY
     Route: 048
     Dates: start: 20210209
  5. KEYTRUDA [Suspect]
     Active Substance: PEMBROLIZUMAB
     Indication: Product used for unknown indication
  6. carvedilol 3.125 mg tablets [Concomitant]
     Indication: Product used for unknown indication
  7. CITALOPRAM [Concomitant]
     Active Substance: CITALOPRAM HYDROBROMIDE
     Indication: Product used for unknown indication
  8. hydrocortisone cream 0.5% [Concomitant]
     Indication: Product used for unknown indication
  9. ketoconazole 200 mg tablet [Concomitant]
     Indication: Product used for unknown indication
  10. ONDANSETRON [Concomitant]
     Active Substance: ONDANSETRON
     Indication: Product used for unknown indication
  11. valsartan 160 mg tablet [Concomitant]
     Indication: Product used for unknown indication

REACTIONS (4)
  - Peripheral swelling [Unknown]
  - Illness [Unknown]
  - Diarrhoea [Unknown]
  - Fatigue [Unknown]

NARRATIVE: CASE EVENT DATE: 20210101
